FAERS Safety Report 8540225-7 (Version None)
Quarter: 2012Q3

REPORT INFORMATION
  Report Type: 
  Country: None (occurrence: None)
  Receive Date: 20120726
  Receipt Date: 20120713
  Transmission Date: 20120928
  Serious: Yes (Hospitalization)
  Sender: FDA-Public Use
  Company Number: US-ROCHE-1078137

PATIENT
  Sex: Male
  Weight: 71 kg

DRUGS (5)
  1. TELAPREVIR [Suspect]
     Indication: HEPATITIS C
     Dosage: MOST RECENT DOSE ON 02 MAY 2012
     Dates: start: 20120330
  2. NADOLOL [Concomitant]
     Indication: PORTAL HYPERTENSION
     Route: 042
  3. PEGASYS [Suspect]
     Indication: HEPATITIS C
     Dosage: MOST RECENT DOSE ON 27 APR 2012
     Dates: start: 20120330
  4. COPEGUS [Suspect]
     Indication: HEPATITIS C
     Dosage: MOST RECENT DOSE ON 02 MAY 2012
     Dates: start: 20120330
  5. DEMECLOCYCLINE HCL [Concomitant]

REACTIONS (4)
  - FATIGUE [None]
  - DYSPNOEA [None]
  - ASTHENIA [None]
  - PANCYTOPENIA [None]
